FAERS Safety Report 6006569-8 (Version None)
Quarter: 2008Q4

REPORT INFORMATION
  Report Type: 
  Country: None (occurrence: None)
  Receive Date: 20081215
  Receipt Date: 20081202
  Transmission Date: 20090506
  Serious: Yes (Disabling, Other)
  Sender: FDA-Public Use
  Company Number: 2008AL012299

PATIENT
  Age: 41 Year
  Sex: Male

DRUGS (5)
  1. BUSPIRONE HYDROCHLORIDE              (ATLLC) [Suspect]
     Indication: ANXIETY
     Dosage: 1 DF, TID; PO
     Route: 048
     Dates: start: 20081118, end: 20081124
  2. CITALOPRAM HYDROBROMIDE [Suspect]
     Indication: ANXIETY
     Dosage: 20 MG, QD; PO
     Route: 048
     Dates: start: 20081111, end: 20081124
  3. ACETAMINOPHEN W/ CODEINE [Concomitant]
  4. OMEPRAZOLE [Concomitant]
  5. DIAZEPAM [Concomitant]

REACTIONS (2)
  - ANXIETY [None]
  - CONDITION AGGRAVATED [None]
